FAERS Safety Report 7171929-9 (Version None)
Quarter: 2010Q4

REPORT INFORMATION
  Report Type: 
  Country: None (occurrence: None)
  Receive Date: 20101217
  Receipt Date: 20101210
  Transmission Date: 20110411
  Serious: Yes (Other)
  Sender: FDA-Public Use
  Company Number: US-MERCK-1012USA02292

PATIENT
  Sex: Female

DRUGS (2)
  1. FOSAMAX [Suspect]
     Route: 048
     Dates: start: 19990401, end: 20080801
  2. FOSAMAX [Suspect]
     Route: 048
     Dates: start: 19990401, end: 20080801

REACTIONS (1)
  - FEMUR FRACTURE [None]
